FAERS Safety Report 8007825-4 (Version None)
Quarter: 2011Q4

REPORT INFORMATION
  Report Type: 
  Country: None (occurrence: None)
  Receive Date: 20111227
  Receipt Date: 20110817
  Transmission Date: 20120403
  Serious: No
  Sender: FDA-Public Use
  Company Number: US-ABBOTT-11P-163-0847185-00

PATIENT
  Sex: Male
  Weight: 120.31 kg

DRUGS (8)
  1. FENOFIBRATE [Concomitant]
     Indication: BLOOD CHOLESTEROL
  2. LEVOTHYROXINE SODIUM [Concomitant]
     Indication: HYPOTHYROIDISM
  3. LISINOPRIL [Concomitant]
     Indication: PRODUCT USED FOR UNKNOWN INDICATION
  4. ZOCOR [Concomitant]
     Indication: BLOOD CHOLESTEROL
  5. ALLOPURINOL [Concomitant]
     Indication: GOUT
  6. TAMSULOSIN HCL [Concomitant]
     Indication: URINARY INCONTINENCE
  7. ACTOS [Concomitant]
     Indication: DIABETES MELLITUS
  8. LUPRON DEPOT [Suspect]
     Indication: PROSTATE CANCER METASTATIC
     Dosage: PATIENT HAS ONLY HAD INITIAL INJECTION
     Route: 030
     Dates: start: 20110614

REACTIONS (9)
  - GAIT DISTURBANCE [None]
  - MUSCULAR WEAKNESS [None]
  - LOSS OF CONTROL OF LEGS [None]
  - HYPOAESTHESIA [None]
  - FALL [None]
  - ASTHENIA [None]
  - WALKING AID USER [None]
  - INTERVERTEBRAL DISC PROTRUSION [None]
  - SPINAL DISORDER [None]
